FAERS Safety Report 7522410-6 (Version None)
Quarter: 2011Q2

REPORT INFORMATION
  Report Type: 
  Country: None (occurrence: None)
  Receive Date: 20110525
  Receipt Date: 20110516
  Transmission Date: 20111010
  Serious: Yes (Death, Hospitalization)
  Sender: FDA-Public Use
  Company Number: NSR_00231_2011

PATIENT
  Age: 25 Year
  Sex: Female

DRUGS (2)
  1. VENLAFAXINE [Suspect]
     Indication: PRODUCT USED FOR UNKNOWN INDICATION
     Dosage: (15750 MG, [INGESTED 210 TABLETS])
  2. BUPROPION HCL [Suspect]
     Indication: PRODUCT USED FOR UNKNOWN INDICATION
     Dosage: (1350 MG, [INGESTED 9 TABLETS])

REACTIONS (12)
  - ABDOMINAL COMPARTMENT SYNDROME [None]
  - TACHYCARDIA [None]
  - RENAL FAILURE ACUTE [None]
  - MULTIPLE DRUG OVERDOSE [None]
  - ACUTE HEPATIC FAILURE [None]
  - DISSEMINATED INTRAVASCULAR COAGULATION [None]
  - ACUTE RESPIRATORY DISTRESS SYNDROME [None]
  - HYPOPERFUSION [None]
  - HEPATIC CONGESTION [None]
  - GASTROINTESTINAL HAEMORRHAGE [None]
  - CARDIOGENIC SHOCK [None]
  - DIALYSIS [None]
